FAERS Safety Report 16679827 (Version 1)
Quarter: 2019Q3

REPORT INFORMATION
  Report Type: Report from Study
  Country: CA (occurrence: CA)
  Receive Date: 20190807
  Receipt Date: 20190807
  Transmission Date: 20191004
  Serious: Yes (Death, Life-Threatening)
  Sender: FDA-Public Use
  Company Number: CA-EISAI MEDICAL RESEARCH-EC-2019-053515

PATIENT
  Age: 63 Year
  Sex: Male

DRUGS (6)
  1. PRO BISOPROLOL [Concomitant]
  2. JAMP-ASA [Concomitant]
  3. ROSUVASTATIN. [Concomitant]
     Active Substance: ROSUVASTATIN
  4. SANDOZ PERINDOPRIL [Concomitant]
  5. LENVIMA [Suspect]
     Active Substance: LENVATINIB
     Indication: HEPATOCELLULAR CARCINOMA
     Route: 048
     Dates: start: 201903
  6. M PANTOPRAZOLE [Concomitant]

REACTIONS (2)
  - Haemorrhagic transformation stroke [Fatal]
  - Tumour lysis syndrome [Fatal]

NARRATIVE: CASE EVENT DATE: 201903
